FAERS Safety Report 16924963 (Version 1)
Quarter: 2019Q4

REPORT INFORMATION
  Report Type: Spontaneous
  Country: GB (occurrence: GB)
  Receive Date: 20191016
  Receipt Date: 20191016
  Transmission Date: 20200122
  Serious: Yes (Death, Hospitalization)
  Sender: FDA-Public Use
  Company Number: GB-MYLANLABS-2019M1096977

PATIENT
  Age: 60 Year
  Sex: Male

DRUGS (3)
  1. DOCETAXEL. [Suspect]
     Active Substance: DOCETAXEL
     Indication: NASOPHARYNGEAL CANCER
     Dosage: UNK
     Dates: start: 20190409
  2. CISPLATIN. [Suspect]
     Active Substance: CISPLATIN
     Indication: NASOPHARYNGEAL CANCER
     Dosage: UNK
     Dates: start: 20190409
  3. FLUOROURACIL. [Suspect]
     Active Substance: FLUOROURACIL
     Indication: NASOPHARYNGEAL CANCER
     Dosage: UNK
     Dates: start: 20190409

REACTIONS (15)
  - Oropharyngeal pain [Unknown]
  - Malaise [Unknown]
  - Hypophagia [Unknown]
  - Tachycardia [Unknown]
  - Vomiting [Unknown]
  - Oral candidiasis [Unknown]
  - Nausea [Unknown]
  - Tachypnoea [Unknown]
  - Productive cough [Unknown]
  - Hypoxia [Unknown]
  - Neutropenic sepsis [Fatal]
  - Body temperature increased [Unknown]
  - Hypotension [Unknown]
  - Arrhythmia [Not Recovered/Not Resolved]
  - Stomatitis [Unknown]

NARRATIVE: CASE EVENT DATE: 20190412
